FAERS Safety Report 21269648 (Version 2)
Quarter: 2022Q3

REPORT INFORMATION
  Report Type: Report from Study
  Country: BD (occurrence: BD)
  Receive Date: 20220830
  Receipt Date: 20220921
  Transmission Date: 20221027
  Serious: Yes (Death, Hospitalization)
  Sender: FDA-Public Use
  Company Number: BD-NOVARTISPH-NVSC2022BD194497

PATIENT
  Age: 79 Year
  Sex: Female
  Weight: 65 kg

DRUGS (1)
  1. ACLASTA [Suspect]
     Active Substance: ZOLEDRONIC ACID
     Indication: Osteoporosis
     Dosage: 5 MG, Q12MO
     Route: 042
     Dates: start: 202201, end: 202201

REACTIONS (1)
  - Colorectal cancer stage IV [Fatal]

NARRATIVE: CASE EVENT DATE: 20220501
